FAERS Safety Report 6675658-7 (Version None)
Quarter: 2010Q2

REPORT INFORMATION
  Report Type: 
  Country: None (occurrence: None)
  Receive Date: 20100409
  Receipt Date: 20100402
  Transmission Date: 20101027
  Serious: Yes (Hospitalization)
  Sender: FDA-Public Use
  Company Number: US-AMGEN-QUU400822

PATIENT
  Sex: Female
  Weight: 60.7 kg

DRUGS (12)
  1. NEULASTA [Suspect]
     Indication: DRUG USE FOR UNKNOWN INDICATION
     Route: 058
     Dates: start: 20090817, end: 20090817
  2. SYNTHROID [Concomitant]
     Route: 048
  3. VITAMIN D [Concomitant]
     Route: 048
  4. UNSPECIFIED NUTRITIONAL SUPPLEMENT [Concomitant]
     Route: 048
  5. COENZYME Q10 [Concomitant]
     Route: 048
  6. FISH OIL [Concomitant]
     Route: 048
  7. VITAMIN C [Concomitant]
     Route: 048
  8. CALCIUM [Concomitant]
     Route: 048
  9. MULTI-VITAMINS [Concomitant]
     Route: 048
  10. OXYCODONE [Concomitant]
  11. METHOTREXATE [Concomitant]
     Route: 048
  12. ZINC [Concomitant]
     Route: 048

REACTIONS (1)
  - SPLENIC RUPTURE [None]
